FAERS Safety Report 16250654 (Version 1)
Quarter: 2019Q2

REPORT INFORMATION
  Report Type: Spontaneous
  Country: US (occurrence: US)
  Receive Date: 20190426
  Receipt Date: 20190426
  Transmission Date: 20190711
  Serious: Yes (Hospitalization, Other)
  Sender: FDA-Public Use
  Company Number: None

PATIENT
  Age: 67 Year
  Sex: Male
  Weight: 85 kg

DRUGS (22)
  1. ATORVASTATIN [Concomitant]
     Active Substance: ATORVASTATIN
     Dates: start: 20190305, end: 20190331
  2. DOCUSATE [Concomitant]
     Active Substance: DOCUSATE
     Dates: start: 20190305, end: 20190423
  3. QUETIAPINE. [Concomitant]
     Active Substance: QUETIAPINE
     Dates: start: 20190417
  4. LORATADINE. [Concomitant]
     Active Substance: LORATADINE
     Dates: start: 20190304
  5. METOPROLOL TARTRATE. [Concomitant]
     Active Substance: METOPROLOL TARTRATE
     Dates: start: 20190305, end: 20190331
  6. VALACYCLOVIR [Concomitant]
     Active Substance: VALACYCLOVIR HYDROCHLORIDE
     Dates: start: 20190305, end: 20190331
  7. OXYCODONE [Concomitant]
     Active Substance: OXYCODONE
     Dates: start: 20190328
  8. LEVOFLOXACIN. [Concomitant]
     Active Substance: LEVOFLOXACIN
     Dates: start: 20190325, end: 20190331
  9. PANTOPRAZOLE [Concomitant]
     Active Substance: PANTOPRAZOLE
     Dates: start: 20190306, end: 20190423
  10. FAMOTIDINE. [Concomitant]
     Active Substance: FAMOTIDINE
     Dates: start: 20190324
  11. CETIRIZINE [Concomitant]
     Active Substance: CETIRIZINE HYDROCHLORIDE
     Dates: start: 20190325
  12. CITRIC ACID-POTASSIUM [Concomitant]
     Dates: start: 20190305, end: 20190306
  13. NYSTATIN. [Concomitant]
     Active Substance: NYSTATIN
     Dates: start: 20190305, end: 20190407
  14. ALLOPURINOL. [Concomitant]
     Active Substance: ALLOPURINOL
     Dates: start: 20190305, end: 20190331
  15. LEUCOVORIN. [Concomitant]
     Active Substance: LEUCOVORIN
     Dates: start: 20190425
  16. KYMRIAH [Suspect]
     Active Substance: TISAGENLECLEUCEL
     Indication: DIFFUSE LARGE B-CELL LYMPHOMA
     Dosage: ?          OTHER FREQUENCY:ONCE;?
     Route: 041
     Dates: start: 20190306, end: 20190306
  17. CHOLECALCIFEROL [Concomitant]
     Active Substance: CHOLECALCIFEROL
     Dates: start: 20190307, end: 20190423
  18. FINASTERIDE. [Concomitant]
     Active Substance: FINASTERIDE
     Dates: start: 20190305, end: 20190331
  19. PHYTONADIONE. [Concomitant]
     Active Substance: PHYTONADIONE
     Dates: start: 20190306, end: 20190417
  20. GABAPENTIN. [Concomitant]
     Active Substance: GABAPENTIN
     Dates: start: 20190423
  21. CRESEMBA [Concomitant]
     Active Substance: ISAVUCONAZONIUM SULFATE
     Dates: start: 20190410
  22. COTRIMOXAZOLE [Concomitant]
     Active Substance: SULFAMETHOXAZOLE\TRIMETHOPRIM
     Dates: start: 20190423

REACTIONS (6)
  - Throat tightness [None]
  - Respiratory failure [None]
  - Angioedema [None]
  - Pneumonia [None]
  - Disease progression [None]
  - Sepsis [None]

NARRATIVE: CASE EVENT DATE: 20190306
